FAERS Safety Report 6829523-2 (Version None)
Quarter: 2010Q3

REPORT INFORMATION
  Report Type: 
  Country: None (occurrence: None)
  Receive Date: 20100709
  Receipt Date: 20070319
  Transmission Date: 20110219
  Serious: No
  Sender: FDA-Public Use
  Company Number: US-PFIZER INC-2007003415

PATIENT
  Sex: Female

DRUGS (4)
  1. CHANTIX [Suspect]
     Indication: SMOKING CESSATION THERAPY
     Route: 048
     Dates: start: 20061201
  2. SYNTHROID [Concomitant]
  3. EFFEXOR XR [Concomitant]
  4. COMBIVENT [Concomitant]

REACTIONS (1)
  - EPISTAXIS [None]
